FAERS Safety Report 25346044 (Version 2)
Quarter: 2025Q2

REPORT INFORMATION
  Report Type: Report from Study
  Country: US (occurrence: US)
  Receive Date: 20250522
  Receipt Date: 20250526
  Transmission Date: 20250716
  Serious: Yes (Hospitalization, Other)
  Sender: ABBVIE
  Company Number: US-ABBVIE-6284265

PATIENT
  Age: 48 Year
  Sex: Male

DRUGS (3)
  1. SKYRIZI [Suspect]
     Active Substance: RISANKIZUMAB-RZAA
     Indication: Crohn^s disease
     Route: 058
     Dates: start: 2025
  2. SKYRIZI [Suspect]
     Active Substance: RISANKIZUMAB-RZAA
     Indication: Crohn^s disease
     Route: 042
     Dates: start: 20250216
  3. Dulcolax [Concomitant]
     Indication: Product used for unknown indication

REACTIONS (9)
  - Influenza [Unknown]
  - Nausea [Unknown]
  - Vomiting [Unknown]
  - Feeling abnormal [Unknown]
  - Haemoptysis [Unknown]
  - Gastroenteritis [Unknown]
  - Pyrexia [Recovered/Resolved]
  - Thinking abnormal [Unknown]
  - Delirium [Unknown]

NARRATIVE: CASE EVENT DATE: 20250101
